FAERS Safety Report 25489689 (Version 3)
Quarter: 2025Q3

REPORT INFORMATION
  Report Type: Report from Study
  Country: US (occurrence: US)
  Receive Date: 20250627
  Receipt Date: 20250808
  Transmission Date: 20251021
  Serious: Yes (Other)
  Sender: PFIZER
  Company Number: US-PFIZER INC-202400305850

PATIENT
  Age: 85 Year
  Sex: Female
  Weight: 97.5 kg

DRUGS (42)
  1. LORBRENA [Suspect]
     Active Substance: LORLATINIB
     Indication: Lung neoplasm malignant
     Dosage: FOR 30 DAYS, SWALLOW WHOLE
     Route: 048
     Dates: start: 20210520
  2. LORBRENA [Suspect]
     Active Substance: LORLATINIB
     Dosage: TAKE 2 TABLETS (50 MG TOTAL) BY MOUTH DAILY TAKE WITH OR WITHOUT FOOD.
     Route: 048
  3. LORBRENA [Suspect]
     Active Substance: LORLATINIB
     Dosage: TAKE 2 TABLETS (50 MG TOTAL) BY MOUTH DAILY. TAKE WITH OR WITHOUT FOOD. DO NOT CRUSH, CHEW, OR DISS
     Route: 048
     Dates: start: 20210520
  4. ALLOPURINOL [Concomitant]
     Active Substance: ALLOPURINOL
  5. AMIODARONE [Concomitant]
     Active Substance: AMIODARONE
  6. ELIQUIS [Concomitant]
     Active Substance: APIXABAN
  7. ASPIRIN [Concomitant]
     Active Substance: ASPIRIN
  8. ATENOLOL [Concomitant]
     Active Substance: ATENOLOL
  9. CALCIUM CARBONATE [Concomitant]
     Active Substance: CALCIUM CARBONATE
  10. CHOLECALCIFEROL [Concomitant]
     Active Substance: CHOLECALCIFEROL
  11. CALTRATE WITH VITAMIN D [Concomitant]
     Active Substance: CALCIUM CARBONATE\CHOLECALCIFEROL
  12. COLACE [Concomitant]
     Active Substance: DOCUSATE SODIUM
  13. XGEVA [Concomitant]
     Active Substance: DENOSUMAB
  14. DOXYCYCLINE HYCLATE [Concomitant]
     Active Substance: DOXYCYCLINE HYCLATE
  15. ESOMEPRAZOLE [Concomitant]
     Active Substance: ESOMEPRAZOLE
  16. EZETIMIBE [Concomitant]
     Active Substance: EZETIMIBE
  17. FLUAD QUADRIVALENT NOS [Concomitant]
     Active Substance: INFLUENZA A VIRUS A/HONG KONG/2671/2019 IVR-208 (H3N2) ANTIGEN (FORMALDEHYDE INACTIVATED)\INFLUENZA
     Dates: start: 2023, end: 2024
  18. FUROSEMIDE [Concomitant]
     Active Substance: FUROSEMIDE
  19. GABAPENTIN [Concomitant]
     Active Substance: GABAPENTIN
  20. HYDROCHLOROTHIAZIDE [Concomitant]
     Active Substance: HYDROCHLOROTHIAZIDE
  21. HYDROMORPHONE [Concomitant]
     Active Substance: HYDROMORPHONE
  22. LEVOTHYROXINE [Concomitant]
     Active Substance: LEVOTHYROXINE
  23. MAGNESIUM [Concomitant]
     Active Substance: MAGNESIUM
  24. METFORMIN [Concomitant]
     Active Substance: METFORMIN HYDROCHLORIDE
  25. METOPROLOL SUCCINATE [Concomitant]
     Active Substance: METOPROLOL SUCCINATE
  26. MUPIROCIN [Concomitant]
     Active Substance: MUPIROCIN
  27. OMEGA-3 FATTY ACIDS [Concomitant]
     Active Substance: OMEGA-3 FATTY ACIDS
  28. TYLENOL [Concomitant]
     Active Substance: ACETAMINOPHEN
  29. POTASSIUM [Concomitant]
     Active Substance: POTASSIUM
  30. SENOKOT [Concomitant]
     Active Substance: SENNOSIDES
  31. PRIORIX [Concomitant]
     Active Substance: MEASLES-MUMPS-RUBELLA VIRUS VACCINE
  32. TORSEMIDE [Concomitant]
     Active Substance: TORSEMIDE
  33. TRIAMCINOLONE [Concomitant]
     Active Substance: TRIAMCINOLONE
  34. VITAMIN B12 [Concomitant]
     Active Substance: CYANOCOBALAMIN
  35. VITAMIN D3 [Concomitant]
     Active Substance: CHOLECALCIFEROL
  36. ATORVASTATIN [Concomitant]
     Active Substance: ATORVASTATIN
  37. POTASSIUM CHLORIDE [Concomitant]
     Active Substance: POTASSIUM CHLORIDE
  38. DOXYCYCLINE [Concomitant]
     Active Substance: DOXYCYCLINE
  39. ESOMEPRAZOLE [Concomitant]
     Active Substance: ESOMEPRAZOLE
  40. LISINOPRIL [Concomitant]
     Active Substance: LISINOPRIL
  41. METOPROLOL [Concomitant]
     Active Substance: METOPROLOL
  42. TRIAMCINOLONE [Concomitant]
     Active Substance: TRIAMCINOLONE

REACTIONS (19)
  - Type 2 diabetes mellitus [Unknown]
  - Peripheral swelling [Unknown]
  - Pain in extremity [Unknown]
  - Erythema [Unknown]
  - Ageusia [Unknown]
  - Anosmia [Unknown]
  - Impaired healing [Unknown]
  - Scratch [Unknown]
  - Scab [Unknown]
  - Dry skin [Not Recovered/Not Resolved]
  - Sneezing [Not Recovered/Not Resolved]
  - Heart rate abnormal [Not Recovered/Not Resolved]
  - Fatigue [Not Recovered/Not Resolved]
  - Fluid retention [Not Recovered/Not Resolved]
  - Peripheral swelling [Not Recovered/Not Resolved]
  - Arthralgia [Unknown]
  - Dyspnoea [Unknown]
  - Product dose omission issue [Unknown]
  - Product dose omission in error [Unknown]
